FAERS Safety Report 13083918 (Version 1)
Quarter: 2017Q1

REPORT INFORMATION
  Report Type: Spontaneous
  Country: US (occurrence: US)
  Receive Date: 20170104
  Receipt Date: 20170104
  Transmission Date: 20170428
  Serious: Yes (Hospitalization)
  Sender: FDA-Public Use
  Company Number: US-PROCTER+GAMBLE-GS16158145

PATIENT
  Age: 10 Month
  Sex: Male

DRUGS (1)
  1. VICKS VAPORUB [Suspect]
     Active Substance: CAMPHOR (SYNTHETIC)\EUCALYPTUS OIL\MENTHOL
     Indication: LOWER RESPIRATORY TRACT INFECTION
     Dosage: UNK
     Route: 061

REACTIONS (2)
  - Drug administered to patient of inappropriate age [Unknown]
  - Pneumonia [Recovered/Resolved]
